FAERS Safety Report 19243810 (Version 1)
Quarter: 2021Q2

REPORT INFORMATION
  Report Type: Spontaneous
  Country: NL (occurrence: NL)
  Receive Date: 20210511
  Receipt Date: 20210511
  Transmission Date: 20210717
  Serious: Yes (Other)
  Sender: FDA-Public Use
  Company Number: NL-TEVA-2021-NL-1909193

PATIENT
  Sex: Male
  Weight: 64 kg

DRUGS (3)
  1. PAROXETINE TABLET 10MG / BRAND NAME NOT SPECIFIED [Suspect]
     Active Substance: PAROXETINE
     Indication: RESTLESSNESS
  2. PAROXETINE TABLET 10MG / BRAND NAME NOT SPECIFIED [Suspect]
     Active Substance: PAROXETINE
     Indication: OBSESSIVE THOUGHTS
  3. PAROXETINE TABLET 10MG / BRAND NAME NOT SPECIFIED [Suspect]
     Active Substance: PAROXETINE
     Indication: ANXIETY
     Dosage: 10 MILLIGRAM DAILY;
     Dates: start: 20210312, end: 20210401

REACTIONS (5)
  - Haematochezia [Recovering/Resolving]
  - Hyperhidrosis [Recovering/Resolving]
  - Abdominal pain lower [Recovering/Resolving]
  - Increased viscosity of upper respiratory secretion [Recovering/Resolving]
  - Dysphagia [Recovering/Resolving]
